FAERS Safety Report 9305717 (Version 1)
Quarter: 2013Q2

REPORT INFORMATION
  Report Type: Spontaneous
  Country: US (occurrence: US)
  Receive Date: 20130523
  Receipt Date: 20130523
  Transmission Date: 20140414
  Serious: Yes (Death, Hospitalization)
  Sender: FDA-Public Use
  Company Number: US-ELI_LILLY_AND_COMPANY-US201305004409

PATIENT
  Sex: Male

DRUGS (1)
  1. FORTEO [Suspect]
     Indication: FRACTURE
     Dosage: UNK UNK, QD
     Dates: start: 201302

REACTIONS (2)
  - Death [Fatal]
  - Myopathy [Unknown]
